FAERS Safety Report 18979738 (Version 1)
Quarter: 2021Q1

REPORT INFORMATION
  Report Type: Report from Study
  Country: FR (occurrence: FR)
  Receive Date: 20210308
  Receipt Date: 20210308
  Transmission Date: 20210420
  Serious: Yes (Other)
  Sender: FDA-Public Use
  Company Number: FR-JNJFOC-20210302412

PATIENT
  Sex: Female

DRUGS (1)
  1. SPRAVATO [Suspect]
     Active Substance: ESKETAMINE
     Indication: DEPRESSION

REACTIONS (5)
  - Anxiety [Unknown]
  - Suicidal ideation [Unknown]
  - Poor quality sleep [Unknown]
  - Depressed mood [Unknown]
  - Anhedonia [Unknown]
